FAERS Safety Report 4380276-X (Version None)
Quarter: 2004Q2

REPORT INFORMATION
  Report Type: 
  Country: None (occurrence: None)
  Receive Date: 20040618
  Receipt Date: 20040607
  Transmission Date: 20050107
  Serious: Yes (Other)
  Sender: FDA-Public Use
  Company Number: PHBS2004US07626

PATIENT
  Age: 62 Year
  Sex: Male

DRUGS (2)
  1. CLOZAPINE [Suspect]
     Indication: SEXUAL DYSFUNCTION
     Dosage: 125 MG/D
     Route: 065
  2. DOPAMINE HCL [Concomitant]
     Route: 065

REACTIONS (4)
  - DYSTONIA [None]
  - FALL [None]
  - GAIT DISTURBANCE [None]
  - PLEUROTHOTONUS [None]
